FAERS Safety Report 8535619 (Version 3)
Quarter: 2013Q4

REPORT INFORMATION
  Report Type: Spontaneous
  Country: US (occurrence: None)
  Receive Date: 20120315
  Receipt Date: 20131226
  Transmission Date: 20140711
  Serious: Yes (Other)
  Sender: FDA-Public Use
  Company Number: PHHY2011US42375

PATIENT
  Age: 32 Year
  Sex: Female

DRUGS (1)
  1. GILENYA [Suspect]
     Indication: MULTIPLE SCLEROSIS
     Dosage: 0.5 MG, QD, ORAL ; 0.5 MG, QOD, ORAL
     Route: 048
     Dates: start: 20101217

REACTIONS (2)
  - Full blood count decreased [None]
  - Incorrect drug administration duration [None]
